FAERS Safety Report 5284006-9 (Version None)
Quarter: 2007Q1

REPORT INFORMATION
  Report Type: 
  Country: None (occurrence: None)
  Receive Date: 20070327
  Receipt Date: 20060515
  Transmission Date: 20070707
  Serious: No
  Sender: FDA-Public Use
  Company Number: TRP_0168_2005

PATIENT
  Age: 48 Year
  Sex: Female
  Weight: 68.9467 kg

DRUGS (15)
  1. RIBASPHERE [Suspect]
     Indication: HEPATITIS C
     Dosage: DF PO
     Route: 048
     Dates: start: 20050226, end: 20050601
  2. RIBASPHERE [Suspect]
     Indication: HEPATITIS C
     Dosage: DF PO
     Route: 048
     Dates: start: 20051001, end: 20060101
  3. PEG-INTRON [Suspect]
     Indication: HEPATITIS C
     Dosage: DF SC
     Route: 058
     Dates: start: 20050226, end: 20050601
  4. PEG-INTRON [Suspect]
     Indication: HEPATITIS C
     Dosage: DF SC
     Route: 058
     Dates: start: 20051001, end: 20060101
  5. METHADONE HCL [Suspect]
     Indication: PAIN
     Dosage: DF
  6. ACETAMINOPHEN AND HYDROCODONE BITARTRATE [Suspect]
  7. FIORICET [Concomitant]
  8. INDERAL [Concomitant]
  9. LEXAPRO [Concomitant]
  10. PROMETHAZINE HCL [Concomitant]
  11. RANITIDINE [Concomitant]
  12. SEROQUEL [Concomitant]
  13. VALIUM [Concomitant]
  14. HYDROCODONE BITARTRATE/ACETAMINOPHEN TABLETS [Concomitant]
  15. .. [Concomitant]

REACTIONS (14)
  - ANOREXIA [None]
  - ANURIA [None]
  - DECREASED APPETITE [None]
  - DEHYDRATION [None]
  - DISORIENTATION [None]
  - DIZZINESS [None]
  - DRUG HYPERSENSITIVITY [None]
  - EPISTAXIS [None]
  - HAEMATURIA [None]
  - LOSS OF CONSCIOUSNESS [None]
  - MUSCULOSKELETAL CHEST PAIN [None]
  - RECTAL HAEMORRHAGE [None]
  - VOMITING [None]
  - WEIGHT DECREASED [None]
